FAERS Safety Report 24599359 (Version 1)
Quarter: 2024Q4

REPORT INFORMATION
  Report Type: Spontaneous
  Country: JP (occurrence: JP)
  Receive Date: 20241110
  Receipt Date: 20241110
  Transmission Date: 20250115
  Serious: Yes (Hospitalization, Other)
  Sender: ALEXION PHARMACEUTICALS
  Company Number: JP-ASTRAZENECA-240119038_010520_P_1

PATIENT
  Age: 81 Year

DRUGS (8)
  1. TRUQAP [Suspect]
     Active Substance: CAPIVASERTIB
     Indication: Breast cancer
     Dosage: DOSE UNKNOWN
  2. TRUQAP [Suspect]
     Active Substance: CAPIVASERTIB
     Dosage: DOSE UNKNOWN
  3. TRUQAP [Suspect]
     Active Substance: CAPIVASERTIB
     Dosage: DOSE UNKNOWN
  4. TRUQAP [Suspect]
     Active Substance: CAPIVASERTIB
     Dosage: DOSE UNKNOWN
  5. FULVESTRANT [Suspect]
     Active Substance: FULVESTRANT
     Indication: Breast cancer
     Dosage: UNK, Q4W
  6. FULVESTRANT [Suspect]
     Active Substance: FULVESTRANT
     Dosage: UNK, Q4W
  7. FULVESTRANT [Suspect]
     Active Substance: FULVESTRANT
     Dosage: UNK, Q4W
  8. FULVESTRANT [Suspect]
     Active Substance: FULVESTRANT
     Dosage: UNK, Q4W

REACTIONS (1)
  - Oesophageal carcinoma [Unknown]
